FAERS Safety Report 22035126 (Version 1)
Quarter: 2023Q1

REPORT INFORMATION
  Report Type: Spontaneous
  Country: US (occurrence: US)
  Receive Date: 20230224
  Receipt Date: 20230224
  Transmission Date: 20230417
  Serious: No
  Sender: FDA-Public Use
  Company Number: US-BANNER LIFE SCIENCES, LLC-2022BAN000301

PATIENT

DRUGS (1)
  1. BAFIERTAM [Suspect]
     Active Substance: MONOMETHYL FUMARATE
     Indication: Multiple sclerosis
     Dosage: 1 CAPSULE TWICE A DAY FOR 7 DAYS, THEN 2 CAPSULES TWICE A DAY
     Route: 048
     Dates: start: 20221114

REACTIONS (2)
  - Abnormal dreams [Unknown]
  - Flushing [Unknown]

NARRATIVE: CASE EVENT DATE: 20220101
